FAERS Safety Report 5197431-1 (Version None)
Quarter: 2006Q4

REPORT INFORMATION
  Report Type: 
  Country: None (occurrence: None)
  Receive Date: 20061227
  Receipt Date: 20061211
  Transmission Date: 20070319
  Serious: Yes (Hospitalization)
  Sender: FDA-Public Use
  Company Number: 2006152087

PATIENT
  Sex: Male

DRUGS (1)
  1. SUTENT [Suspect]
     Indication: METASTATIC RENAL CELL CARCINOMA
     Dosage: 100 MG (50 MG, 2 IN 1 D)
     Dates: start: 20061103, end: 20061120

REACTIONS (6)
  - ASTHENIA [None]
  - HAEMANGIOMA OF LIVER [None]
  - METASTASES TO LIVER [None]
  - OVERDOSE [None]
  - PANCYTOPENIA [None]
  - PNEUMONIA BACTERIAL [None]
